FAERS Safety Report 17730610 (Version 1)
Quarter: 2020Q2

REPORT INFORMATION
  Report Type: Report from Study
  Country: CO (occurrence: CO)
  Receive Date: 20200430
  Receipt Date: 20200430
  Transmission Date: 20200714
  Serious: Yes (Hospitalization)
  Sender: FDA-Public Use
  Company Number: NVSC2017CO007330

PATIENT
  Sex: Female

DRUGS (1)
  1. EXJADE [Suspect]
     Active Substance: DEFERASIROX
     Indication: MYELODYSPLASTIC SYNDROME
     Dosage: 2 DF, QD
     Route: 065

REACTIONS (5)
  - Vomiting [Unknown]
  - Abdominal pain [Unknown]
  - Platelet count abnormal [Unknown]
  - Haemoglobin decreased [Unknown]
  - Bone pain [Unknown]
